FAERS Safety Report 9925155 (Version 1)
Quarter: 2014Q1

REPORT INFORMATION
  Report Type: Spontaneous
  Country: US (occurrence: None)
  Receive Date: 20140220
  Receipt Date: 20140220
  Transmission Date: 20141002
  Serious: Yes (Hospitalization, Other)
  Sender: FDA-Public Use
  Company Number: AUR-APL-2014-01848

PATIENT
  Age: 59 Year
  Sex: Male

DRUGS (12)
  1. LISINOPRIL [Suspect]
     Indication: BLOOD PRESSURE ABNORMAL
     Route: 048
     Dates: start: 201303
  2. TENORMIN (ATENOLOL) [Suspect]
     Indication: BLOOD PRESSURE ABNORMAL
     Route: 048
     Dates: start: 2005
  3. NEXIUM (ESOMEPRAZOLE MAGNESIUM) [Suspect]
     Indication: GASTROOESOPHAGEAL REFLUX DISEASE
     Route: 048
     Dates: start: 201109
  4. NEXIUM (ESOMEPRAZOLE MAGNESIUM) [Suspect]
     Indication: ULCER HAEMORRHAGE
     Route: 048
     Dates: start: 201109
  5. FLEXERIL (CYCLOBENZAPRINE HYDROCHLORIDE) [Concomitant]
  6. ULTRAM [Concomitant]
  7. ASPIRIN [Concomitant]
  8. HYDROCODONE [Concomitant]
  9. PROTONIX [Concomitant]
  10. DEXLANSOPRAZOLE [Concomitant]
  11. TRAMADOL [Concomitant]
  12. CYCLOBENZAPRINE [Concomitant]

REACTIONS (12)
  - Pain [None]
  - Diarrhoea [None]
  - Gastrointestinal haemorrhage [None]
  - Pancreatitis [None]
  - Oesophagitis [None]
  - Duodenal ulcer [None]
  - Barrett^s oesophagus [None]
  - Rectal polyp [None]
  - Inguinal hernia [None]
  - Renal cyst [None]
  - Drug dose omission [None]
  - Ill-defined disorder [None]
